FAERS Safety Report 4268004-X (Version None)
Quarter: 2004Q1

REPORT INFORMATION
  Report Type: 
  Country: None (occurrence: None)
  Receive Date: 20040109
  Receipt Date: 20040105
  Transmission Date: 20041129
  Serious: Yes (Other)
  Sender: FDA-Public Use
  Company Number: PHEH2004US00507

PATIENT
  Age: 42 Year
  Sex: Female

DRUGS (1)
  1. TRILEPTAL [Suspect]
     Indication: EPILEPSY
     Dosage: UNK/UNK
     Route: 064
     Dates: start: 20030501, end: 20030701

REACTIONS (3)
  - ABORTION SPONTANEOUS [None]
  - COMPLICATIONS OF MATERNAL EXPOSURE TO THERAPEUTIC DRUGS [None]
  - DRUG EXPOSURE DURING PREGNANCY [None]
